FAERS Safety Report 20814672 (Version 1)
Quarter: 2022Q2

REPORT INFORMATION
  Report Type: Spontaneous
  Country: TW (occurrence: TW)
  Receive Date: 20220511
  Receipt Date: 20220511
  Transmission Date: 20220721
  Serious: Yes (Hospitalization, Other)
  Sender: FDA-Public Use
  Company Number: TW-SA-2022SA162969

PATIENT
  Age: 70 Year
  Sex: Female
  Weight: 51 kg

DRUGS (6)
  1. DOCETAXEL [Suspect]
     Active Substance: DOCETAXEL
     Indication: Neoplasm
     Dosage: 75 MG/M2, Q3W
     Dates: start: 20220127, end: 20220414
  2. MIRZOTAMAB CLEZUTOCLAX [Suspect]
     Active Substance: MIRZOTAMAB CLEZUTOCLAX
     Indication: Neoplasm
     Dosage: 16 MG/KG, Q3W
     Route: 050
     Dates: start: 20220127, end: 20220414
  3. ZOLPIDEM TARTRATE [Concomitant]
     Active Substance: ZOLPIDEM TARTRATE
     Dosage: 10 MG, QD
     Dates: start: 20190425
  4. TRIAMCINOLONE ACETONIDE [Concomitant]
     Active Substance: TRIAMCINOLONE ACETONIDE
     Indication: Mouth ulceration
     Dosage: 2 G, BID
     Route: 061
     Dates: start: 20220421
  5. CELECOXIB [Concomitant]
     Active Substance: CELECOXIB
     Indication: Tumour pain
     Dosage: 200 MG, QD
     Route: 048
     Dates: start: 20220421
  6. TRANEXAMIC ACID [Concomitant]
     Active Substance: TRANEXAMIC ACID
     Indication: Epistaxis
     Dosage: 250 MG, TID
     Route: 048
     Dates: start: 20220418, end: 20220422

REACTIONS (3)
  - Septic shock [Not Recovered/Not Resolved]
  - Somnolence [Unknown]
  - Dyspnoea [Unknown]

NARRATIVE: CASE EVENT DATE: 20220423
